FAERS Safety Report 9236692 (Version 4)
Quarter: 2014Q1

REPORT INFORMATION
  Report Type: Spontaneous
  Country: US (occurrence: US)
  Receive Date: 20130417
  Receipt Date: 20140211
  Transmission Date: 20141002
  Serious: Yes (Hospitalization, Disabling)
  Sender: FDA-Public Use
  Company Number: US-GLAXOSMITHKLINE-A1015685A

PATIENT
  Age: 47 Year
  Sex: Female
  Weight: 53.1 kg

DRUGS (10)
  1. TYKERB [Suspect]
     Indication: BREAST CANCER
     Dosage: 1000MG PER DAY
     Route: 048
     Dates: start: 2012
  2. CHEMOTHERAPY [Concomitant]
  3. RADIATION [Concomitant]
  4. FENTANYL [Concomitant]
  5. HYDROMORPHONE [Concomitant]
     Indication: PAIN
  6. LOPERAMIDE [Concomitant]
     Indication: DIARRHOEA
  7. LORAZEPAM [Concomitant]
     Indication: NAUSEA
  8. METOPROLOL TARTRATE [Concomitant]
  9. OMEPRAZOLE [Concomitant]
  10. SERTRALINE [Concomitant]

REACTIONS (5)
  - Mitral valve incompetence [Unknown]
  - Cardiac disorder [Recovering/Resolving]
  - Investigation [Recovering/Resolving]
  - Lower limb fracture [Recovering/Resolving]
  - Fall [Recovering/Resolving]
